FAERS Safety Report 8898687 (Version 1)
Quarter: 2012Q4

REPORT INFORMATION
  Report Type: 
  Country: TW (occurrence: TW)
  Receive Date: 20121109
  Receipt Date: 20121109
  Transmission Date: 20130627
  Serious: Yes (Other)
  Sender: FDA-Public Use
  Company Number: TW-US-EMD SERONO, INC.-7171228

PATIENT
  Age: 24 Year
  Sex: Female

DRUGS (4)
  1. PERGONAL [Suspect]
     Indication: OVULATION INDUCTION
     Dosage: 2 ampoules per day
  2. CHORIOGONADOTROPIN ALFA [Suspect]
     Indication: OVULATION INDUCTION
  3. CLOMID [Suspect]
     Indication: OVULATION INDUCTION
  4. UTROGESTAN [Concomitant]
     Indication: OVULATION INDUCTION
     Route: 048

REACTIONS (2)
  - Intra-abdominal haemorrhage [Recovered/Resolved]
  - Ruptured ectopic pregnancy [Recovered/Resolved]
